FAERS Safety Report 13928607 (Version 1)
Quarter: 2017Q3

REPORT INFORMATION
  Report Type: Spontaneous
  Country: GB (occurrence: GB)
  Receive Date: 20170901
  Receipt Date: 20170901
  Transmission Date: 20171127
  Serious: Yes (Hospitalization)
  Sender: FDA-Public Use
  Company Number: GB-TEVA-800940ACC

PATIENT
  Age: 59 Year
  Sex: Female

DRUGS (10)
  1. PERINDOPRIL [Concomitant]
     Active Substance: PERINDOPRIL
  2. BENDROFLUMETHIAZIDE [Concomitant]
     Active Substance: BENDROFLUMETHIAZIDE
  3. RANITIDINE. [Concomitant]
     Active Substance: RANITIDINE
  4. LETROZOLE. [Concomitant]
     Active Substance: LETROZOLE
  5. COLECALCIFEROL [Concomitant]
     Active Substance: CHOLECALCIFEROL
  6. GAVISCON ADVANCE [Concomitant]
     Active Substance: POTASSIUM BICARBONATE\SODIUM ALGINATE
  7. MOMETASONE [Concomitant]
     Active Substance: MOMETASONE
  8. PREGABALIN. [Concomitant]
     Active Substance: PREGABALIN
  9. PANTOPRAZOLE [Suspect]
     Active Substance: PANTOPRAZOLE
  10. LINACLOTIDE [Concomitant]
     Active Substance: LINACLOTIDE

REACTIONS (1)
  - Contusion [Unknown]
